FAERS Safety Report 17086959 (Version 1)
Quarter: 2020Q3

REPORT INFORMATION
  Report Type: Spontaneous
  Country: AU (occurrence: AU)
  Receive Date: 20191128
  Receipt Date: 20191128
  Transmission Date: 20201105
  Serious: Yes (Other)
  Sender: FDA-Public Use
  Company Number: AU-ROCHE-2481748

PATIENT
  Sex: Female
  Weight: 102 kg

DRUGS (4)
  1. IBANDRONIC ACID. [Suspect]
     Active Substance: IBANDRONIC ACID
     Indication: OSTEOPOROSIS
     Route: 065
     Dates: start: 2019
  2. RIBOCICLIB. [Suspect]
     Active Substance: RIBOCICLIB
     Indication: BREAST CANCER METASTATIC
     Route: 065
     Dates: end: 20190916
  3. RIBOCICLIB. [Suspect]
     Active Substance: RIBOCICLIB
     Route: 065
     Dates: start: 20190125, end: 20190715
  4. RIBOCICLIB. [Suspect]
     Active Substance: RIBOCICLIB
     Route: 065
     Dates: start: 20181228, end: 20190124

REACTIONS (3)
  - Rash [Not Recovered/Not Resolved]
  - Febrile neutropenia [Recovered/Resolved]
  - Neutropenia [Not Recovered/Not Resolved]

NARRATIVE: CASE EVENT DATE: 2019
